FAERS Safety Report 12775290 (Version 1)
Quarter: 2016Q3

REPORT INFORMATION
  Report Type: Spontaneous
  Country: US (occurrence: US)
  Receive Date: 20160923
  Receipt Date: 20160923
  Transmission Date: 20161109
  Serious: No
  Sender: FDA-Public Use
  Company Number: US-UPSHER-SMITH LABORATORIES, INC.-16001655

PATIENT
  Age: 69 Year
  Sex: Male

DRUGS (5)
  1. TESTOSTERONE. [Suspect]
     Active Substance: TESTOSTERONE
     Indication: FATIGUE
     Dosage: 50 MG, QD
     Route: 061
     Dates: start: 201605
  2. TESTOSTERONE. [Suspect]
     Active Substance: TESTOSTERONE
     Indication: LIBIDO DECREASED
  3. TESTOSTERONE. [Suspect]
     Active Substance: TESTOSTERONE
     Indication: BLOOD TESTOSTERONE DECREASED
  4. DURAGESIC [Concomitant]
     Active Substance: FENTANYL
     Indication: FLANK PAIN
     Dosage: UNK, UNK
     Route: 062
  5. DURAGESIC [Concomitant]
     Active Substance: FENTANYL
     Indication: BACK PAIN

REACTIONS (2)
  - Gynaecomastia [Not Recovered/Not Resolved]
  - Application site rash [Recovered/Resolved]

NARRATIVE: CASE EVENT DATE: 201605
